FAERS Safety Report 23242803 (Version 1)
Quarter: 2023Q4

REPORT INFORMATION
  Report Type: Spontaneous
  Country: US (occurrence: US)
  Receive Date: 20231129
  Receipt Date: 20231129
  Transmission Date: 20240109
  Serious: Yes (Hospitalization)
  Sender: FDA-Public Use
  Company Number: US-BoehringerIngelheim-2023-BI-274637

PATIENT
  Age: 90 Year
  Sex: Male

DRUGS (1)
  1. EMPAGLIFLOZIN [Suspect]
     Active Substance: EMPAGLIFLOZIN
     Indication: Product used for unknown indication
     Dosage: FORM STRENGTH: 10 MILLIGRAM

REACTIONS (5)
  - Septic shock [Recovering/Resolving]
  - Urinary tract infection [Recovering/Resolving]
  - Mental status changes [Unknown]
  - Klebsiella infection [Unknown]
  - Candida infection [Unknown]
